FAERS Safety Report 8882540 (Version 3)
Quarter: 2014Q2

REPORT INFORMATION
  Report Type: Spontaneous
  Country: US (occurrence: US)
  Receive Date: 20121102
  Receipt Date: 20131001
  Transmission Date: 20141212
  Serious: Yes (Other)
  Sender: FDA-Public Use
  Company Number: US-AMGEN-USASP2012069284

PATIENT
  Age: 46 Year
  Sex: Female

DRUGS (6)
  1. PROCRIT [Suspect]
     Indication: NEPHROGENIC ANAEMIA
     Dosage: 60000 UNIT, QWK
  2. VITAMIN B12                        /00056201/ [Concomitant]
     Dosage: UNK
  3. BACTRIM [Concomitant]
     Dosage: UNK
  4. LORAZEPAM [Concomitant]
     Dosage: AS NEEDED
  5. OMEPRAZOLE [Concomitant]
     Indication: GASTROOESOPHAGEAL REFLUX DISEASE
     Dosage: UNK
  6. PREDNISONE [Concomitant]
     Dosage: UNK

REACTIONS (1)
  - Aplasia pure red cell [Unknown]
